FAERS Safety Report 15198439 (Version 2)
Quarter: 2018Q3

REPORT INFORMATION
  Report Type: Spontaneous
  Country: DE (occurrence: DE)
  Receive Date: 20180725
  Receipt Date: 20180725
  Transmission Date: 20181010
  Serious: Yes (Death, Life-Threatening, Hospitalization, Other)
  Sender: FDA-Public Use
  Company Number: PHHY2018DE052192

PATIENT
  Age: 65 Year
  Sex: Male
  Weight: 58 kg

DRUGS (14)
  1. COTRIM FORTE [Concomitant]
     Active Substance: SULFAMETHOXAZOLE\TRIMETHOPRIM
     Indication: PROPHYLAXIS
     Dosage: UNK
     Route: 065
  2. CEFTRIAXONE. [Concomitant]
     Active Substance: CEFTRIAXONE
     Indication: PRODUCT USED FOR UNKNOWN INDICATION
     Dosage: UNK
     Route: 065
  3. MEROPENEM. [Concomitant]
     Active Substance: MEROPENEM
     Indication: PRODUCT USED FOR UNKNOWN INDICATION
     Dosage: UNK
     Route: 065
  4. KALETRA [Concomitant]
     Active Substance: LOPINAVIR\RITONAVIR
     Indication: HIV INFECTION
     Dosage: UNK
     Route: 065
  5. SIMVASTATIN. [Interacting]
     Active Substance: SIMVASTATIN
     Indication: ATRIAL FIBRILLATION
     Dosage: 40 MG, QD
     Route: 048
     Dates: end: 20150416
  6. TRUVADA [Interacting]
     Active Substance: EMTRICITABINE\TENOFOVIR DISOPROXIL FUMARATE
     Indication: HIV INFECTION
     Dosage: 1 DF, QD
     Route: 065
     Dates: start: 20140919, end: 20150414
  7. ASPIRIN. [Interacting]
     Active Substance: ASPIRIN
     Indication: ATRIAL FIBRILLATION
     Dosage: 100 MG, QD
     Route: 065
  8. TIVICAY [Interacting]
     Active Substance: DOLUTEGRAVIR SODIUM
     Indication: HIV INFECTION
     Dosage: 50 MG, QD
     Route: 048
     Dates: start: 20140919, end: 20150414
  9. PIPERACILLIN AND TAZOBACTAM [Concomitant]
     Active Substance: PIPERACILLIN SODIUM\TAZOBACTAM SODIUM
     Indication: PRODUCT USED FOR UNKNOWN INDICATION
     Route: 065
  10. PANTOPRAZOLE [Suspect]
     Active Substance: PANTOPRAZOLE
     Indication: GASTROOESOPHAGEAL REFLUX DISEASE
     Dosage: 1 DF, QD 1X 20?40MG OVER YEARS
     Route: 048
     Dates: start: 20150327, end: 20150416
  11. OMEPRAZOLE. [Concomitant]
     Active Substance: OMEPRAZOLE
     Indication: PROPHYLAXIS
     Dosage: UNK
     Route: 065
  12. CANDIO HERMAL [Concomitant]
     Indication: OESOPHAGEAL CANDIDIASIS
     Dosage: UNK
     Route: 065
  13. FLUCONAZOL [Concomitant]
     Active Substance: FLUCONAZOLE
     Indication: PRODUCT USED FOR UNKNOWN INDICATION
     Route: 065
  14. METOPROLOL. [Interacting]
     Active Substance: METOPROLOL
     Indication: HYPERTENSION
     Dosage: 95 MG, QD
     Route: 065
     Dates: start: 201409, end: 201506

REACTIONS (53)
  - Hepatitis [Fatal]
  - Chromaturia [Fatal]
  - Jaundice [Fatal]
  - Hepatotoxicity [Not Recovered/Not Resolved]
  - Asthenia [Unknown]
  - Abdominal pain [Unknown]
  - Hyperferritinaemia [Unknown]
  - Coagulopathy [Fatal]
  - Cholangitis [Fatal]
  - Renal failure [Fatal]
  - Faeces pale [Fatal]
  - Portal fibrosis [Unknown]
  - Thrombocytopenia [Unknown]
  - Metabolic acidosis [Unknown]
  - Hepatic failure [Fatal]
  - Leukopenia [Unknown]
  - Sepsis [Unknown]
  - General physical health deterioration [Fatal]
  - Weight decreased [Fatal]
  - Lymphadenopathy [Unknown]
  - Hepatitis cholestatic [Unknown]
  - Abdominal pain upper [Unknown]
  - Pneumonia bacterial [Unknown]
  - Disseminated intravascular coagulation [Fatal]
  - Multiple organ dysfunction syndrome [Fatal]
  - Hepatic necrosis [Unknown]
  - Shock haemorrhagic [Unknown]
  - Pancytopenia [Unknown]
  - Hypoxia [Unknown]
  - Hepatomegaly [Unknown]
  - Pyrexia [Unknown]
  - Upper gastrointestinal haemorrhage [Fatal]
  - Neutropenia [Unknown]
  - Agranulocytosis [Unknown]
  - Drug-induced liver injury [Fatal]
  - Circulatory collapse [Fatal]
  - Hepatic enzyme increased [Fatal]
  - Nausea [Unknown]
  - Cholestasis [Unknown]
  - Hepatic function abnormal [Unknown]
  - Candida infection [Unknown]
  - Acidosis [Unknown]
  - Decreased appetite [Unknown]
  - Duodenal ulcer [Unknown]
  - Hypovolaemic shock [Fatal]
  - Fatigue [Fatal]
  - Splenomegaly [Unknown]
  - Ocular icterus [Unknown]
  - Confusional state [Unknown]
  - Drug interaction [Unknown]
  - Cholangitis [Not Recovered/Not Resolved]
  - Hepatitis fulminant [Not Recovered/Not Resolved]
  - Bone marrow failure [Recovered/Resolved]

NARRATIVE: CASE EVENT DATE: 20150324
